FAERS Safety Report 25856955 (Version 1)
Quarter: 2025Q3

REPORT INFORMATION
  Report Type: Spontaneous
  Country: EU (occurrence: EU)
  Receive Date: 20250929
  Receipt Date: 20250929
  Transmission Date: 20251020
  Serious: Yes (Hospitalization)
  Sender: VELOXIS PHARMACEUTICALS
  Company Number: EU-CHIESI-2025CHF06627

PATIENT
  Sex: Male

DRUGS (3)
  1. TACROLIMUS [Interacting]
     Active Substance: TACROLIMUS
     Indication: Product used for unknown indication
     Route: 065
  2. RITONAVIR [Interacting]
     Active Substance: RITONAVIR
     Indication: Product used for unknown indication
     Route: 065
  3. NIRMATRELVIR [Interacting]
     Active Substance: NIRMATRELVIR
     Indication: Product used for unknown indication
     Route: 065

REACTIONS (3)
  - Overdose [Recovered/Resolved]
  - Drug interaction [Recovered/Resolved]
  - Confusional state [Recovered/Resolved]
